FAERS Safety Report 19391881 (Version 2)
Quarter: 2021Q2

REPORT INFORMATION
  Report Type: Spontaneous
  Country: ES (occurrence: ES)
  Receive Date: 20210609
  Receipt Date: 20210618
  Transmission Date: 20210717
  Serious: Yes (Other)
  Sender: FDA-Public Use
  Company Number: ES-TEVA-2021-ES-1919883

PATIENT
  Age: 32 Year
  Sex: Female

DRUGS (5)
  1. MOXIFLOXACIN. [Suspect]
     Active Substance: MOXIFLOXACIN
     Indication: ATYPICAL PNEUMONIA
     Dosage: 400 MILLIGRAM DAILY;
     Route: 048
  2. PILOCARPINE. [Suspect]
     Active Substance: PILOCARPINE
     Indication: IRIS TRANSILLUMINATION DEFECT
     Dosage: DILUTED TO 0.125%, AND TO A CONCENTRATION HIGHER THAN 2%
     Route: 065
  3. TAMIFLU [Concomitant]
     Active Substance: OSELTAMIVIR PHOSPHATE
     Indication: INFLUENZA
     Route: 065
  4. AZITHROMYCIN ANHYDROUS. [Concomitant]
     Active Substance: AZITHROMYCIN ANHYDROUS
     Indication: EVIDENCE BASED TREATMENT
     Route: 065
  5. CEFTRIAXONE. [Concomitant]
     Active Substance: CEFTRIAXONE
     Indication: EVIDENCE BASED TREATMENT
     Route: 065

REACTIONS (2)
  - Therapy non-responder [Unknown]
  - Iris transillumination defect [Not Recovered/Not Resolved]
